FAERS Safety Report 21121698 (Version 1)
Quarter: 2022Q3

REPORT INFORMATION
  Report Type: Spontaneous
  Country: DE (occurrence: DE)
  Receive Date: 20220722
  Receipt Date: 20220722
  Transmission Date: 20221026
  Serious: Yes (Death, Other)
  Sender: FDA-Public Use
  Company Number: DE-NOVARTISPH-NVSC2022DE166180

PATIENT
  Age: 55 Year
  Sex: Female
  Weight: 120 kg

DRUGS (8)
  1. VOTRIENT [Suspect]
     Active Substance: PAZOPANIB HYDROCHLORIDE
     Indication: Renal cell carcinoma
     Dosage: 800 MG
     Route: 065
     Dates: start: 201109, end: 201904
  2. VOTRIENT [Suspect]
     Active Substance: PAZOPANIB HYDROCHLORIDE
     Indication: Metastases to spine
  3. METOCLOPRAMIDE [Suspect]
     Active Substance: METOCLOPRAMIDE
     Indication: Nausea
     Dosage: UNK
     Route: 065
     Dates: start: 201209
  4. METOCLOPRAMIDE [Suspect]
     Active Substance: METOCLOPRAMIDE
     Indication: Vomiting
  5. HYDROMORPHONE [Suspect]
     Active Substance: HYDROMORPHONE
     Indication: Pelvic pain
     Dosage: UNK
     Route: 065
     Dates: start: 2012, end: 2013
  6. HYDROMORPHONE [Suspect]
     Active Substance: HYDROMORPHONE
     Indication: Spinal pain
     Dosage: UNK
     Route: 065
     Dates: start: 2013
  7. ZOLEDRONIC ACID [Suspect]
     Active Substance: ZOLEDRONIC ACID
     Indication: Product used for unknown indication
     Dosage: UNK
     Route: 065
  8. XGEVA [Suspect]
     Active Substance: DENOSUMAB
     Indication: Product used for unknown indication
     Dosage: UNK
     Route: 065

REACTIONS (16)
  - Death [Fatal]
  - Metastases to spine [Unknown]
  - Metastases to lung [Not Recovered/Not Resolved]
  - Metastases to lymph nodes [Unknown]
  - Intervertebral disc degeneration [Unknown]
  - Pain [Unknown]
  - General physical health deterioration [Recovering/Resolving]
  - Pelvic pain [Recovering/Resolving]
  - Spinal pain [Recovering/Resolving]
  - Concomitant disease aggravated [Recovering/Resolving]
  - Headache [Unknown]
  - Blood creatinine increased [Unknown]
  - Nausea [Unknown]
  - Decreased appetite [Unknown]
  - Fatigue [Unknown]
  - Vomiting [Unknown]

NARRATIVE: CASE EVENT DATE: 20110901
